FAERS Safety Report 22098246 (Version 1)
Quarter: 2023Q1

REPORT INFORMATION
  Report Type: Report from Study
  Country: CN (occurrence: CN)
  Receive Date: 20230315
  Receipt Date: 20230315
  Transmission Date: 20230418
  Serious: Yes (Other)
  Sender: FDA-Public Use
  Company Number: CN-JNJFOC-20230322523

PATIENT
  Age: 50 Year
  Sex: Male

DRUGS (1)
  1. SPORANOX [Suspect]
     Active Substance: ITRACONAZOLE
     Indication: Acute pulmonary histoplasmosis
     Route: 048

REACTIONS (3)
  - Bradycardia [Unknown]
  - Hypokalaemia [Unknown]
  - Off label use [Unknown]
